FAERS Safety Report 8610294-4 (Version None)
Quarter: 2012Q3

REPORT INFORMATION
  Report Type: 
  Country: None (occurrence: None)
  Receive Date: 20120822
  Receipt Date: 20120815
  Transmission Date: 20120928
  Serious: Yes (Other)
  Sender: FDA-Public Use
  Company Number: PHHY2012DE066825

PATIENT
  Sex: Male

DRUGS (10)
  1. TASIGNA [Suspect]
     Indication: CHRONIC MYELOID LEUKAEMIA
     Dosage: 600 MG, DAILY
     Route: 048
     Dates: start: 20111012
  2. HYDROXYUREA [Concomitant]
     Indication: POLYCYTHAEMIA VERA
  3. METFORMIN [Concomitant]
     Indication: DIABETES MELLITUS
     Dosage: 1000 MG, UNK
     Route: 048
  4. ACETYLSALICYLIC ACID SRT [Concomitant]
     Indication: EMBOLISM VENOUS
     Dosage: 100 MG, DAILY
     Route: 048
  5. ALLOPURINOL [Concomitant]
     Indication: HYPERURICAEMIA
     Dosage: 300 MG, UNK
     Route: 048
  6. JANUVIA [Concomitant]
     Indication: DIABETES MELLITUS
  7. TASIGNA [Suspect]
     Dosage: UNK
  8. VALSARTAN/HYDROCHLOROTHIAZIDE [Concomitant]
     Indication: HYPERTENSION
     Dosage: 80 MG/12.5 MG DAILY
     Route: 048
  9. DIOVAN [Concomitant]
     Indication: HYPERTENSION
     Dosage: 80 MG, DAILY
     Route: 048
  10. HYDROXYUREA [Concomitant]
     Indication: MYELOPROLIFERATIVE DISORDER
     Dosage: 1500 MG/ 1000 MG/ 1000 MG/ 1500 MG ALTERNATING
     Route: 048
     Dates: start: 19940201

REACTIONS (11)
  - CONDITION AGGRAVATED [None]
  - THYROXINE DECREASED [None]
  - THYROID DISORDER [None]
  - THYROID NEOPLASM [None]
  - TRI-IODOTHYRONINE DECREASED [None]
  - BLOOD THYROID STIMULATING HORMONE DECREASED [None]
  - HYPERGLYCAEMIA [None]
  - ANTI-THYROID ANTIBODY POSITIVE [None]
  - AUTOIMMUNE THYROIDITIS [None]
  - BLOOD THYROID STIMULATING HORMONE INCREASED [None]
  - HYPOTHYROIDISM [None]
